FAERS Safety Report 10254394 (Version 1)
Quarter: 2014Q2

REPORT INFORMATION
  Report Type: Spontaneous
  Country: US (occurrence: US)
  Receive Date: 20140624
  Receipt Date: 20140624
  Transmission Date: 20141212
  Serious: Yes (Other)
  Sender: FDA-Public Use
  Company Number: US-AMGEN INC.-USASP2014046506

PATIENT
  Age: 51 Year
  Sex: Female

DRUGS (1)
  1. ENBREL [Suspect]
     Indication: PSORIATIC ARTHROPATHY
     Dosage: 50 MG, QWK
     Route: 065
     Dates: start: 20130501

REACTIONS (5)
  - Heart rate increased [Recovered/Resolved]
  - Arthritis [Recovered/Resolved]
  - Psoriasis [Recovered/Resolved]
  - Peripheral swelling [Recovered/Resolved]
  - Injection site pain [Recovered/Resolved]
